FAERS Safety Report 9036229 (Version 2)
Quarter: 2014Q1

REPORT INFORMATION
  Report Type: Spontaneous
  Country: FR (occurrence: None)
  Receive Date: 20130114
  Receipt Date: 20140109
  Transmission Date: 20141002
  Serious: Yes (Hospitalization)
  Sender: FDA-Public Use
  Company Number: 7185234

PATIENT
  Age: 62 Year
  Sex: Female

DRUGS (3)
  1. LEVOTHYROX (LEVOTHYROXINE SODIUM) INFUSION [Suspect]
     Indication: PRODUCT USED FOR UNKNOWN INDICATION
  2. PARACETAMOL (PARACETAMOL) [Suspect]
     Indication: PRODUCT USED FOR UNKNOWN INDICATION
     Dates: start: 20121123, end: 20121130
  3. TAHOR [Suspect]
     Indication: PRODUCT USED FOR UNKNOWN INDICATION
     Route: 048

REACTIONS (5)
  - Pancytopenia [None]
  - C-reactive protein increased [None]
  - Lymphocytic leukaemia [None]
  - Agranulocytosis [None]
  - Disease recurrence [None]
